FAERS Safety Report 25366178 (Version 1)
Quarter: 2025Q2

REPORT INFORMATION
  Report Type: Spontaneous
  Country: DE (occurrence: DE)
  Receive Date: 20250528
  Receipt Date: 20250528
  Transmission Date: 20250717
  Serious: Yes (Other)
  Sender: ABBVIE
  Company Number: None

PATIENT
  Age: 48 Year
  Sex: Female
  Weight: 65 kg

DRUGS (1)
  1. LEVONORGESTREL [Suspect]
     Active Substance: LEVONORGESTREL
     Indication: Adenomyosis
     Route: 015
     Dates: start: 20211112, end: 20250310

REACTIONS (6)
  - Hypertension [Recovered/Resolved]
  - Sick leave [Recovered/Resolved]
  - Sleep disorder [Recovered/Resolved]
  - Arrhythmia [Recovered/Resolved]
  - Panic attack [Recovered/Resolved]
  - Depressed mood [Recovered/Resolved]

NARRATIVE: CASE EVENT DATE: 20250101
